FAERS Safety Report 7989780-6 (Version None)
Quarter: 2011Q4

REPORT INFORMATION
  Report Type: 
  Country: None (occurrence: None)
  Receive Date: 20111219
  Receipt Date: 20110707
  Transmission Date: 20120403
  Serious: No
  Sender: FDA-Public Use
  Company Number: US-ASTRAZENECA-2011SE18063

PATIENT
  Age: 65 Year
  Sex: Male
  Weight: 108.9 kg

DRUGS (1)
  1. CRESTOR [Suspect]
     Indication: BLOOD CHOLESTEROL INCREASED
     Route: 048

REACTIONS (12)
  - SPINAL DISORDER [None]
  - PAIN [None]
  - LUMBAR SPINAL STENOSIS [None]
  - INTERVERTEBRAL DISC PROTRUSION [None]
  - ARTHRALGIA [None]
  - FATIGUE [None]
  - SPINAL OSTEOARTHRITIS [None]
  - WEIGHT DECREASED [None]
  - MUSCULAR WEAKNESS [None]
  - CHIROPRACTIC [None]
  - POOR QUALITY SLEEP [None]
  - CONDITION AGGRAVATED [None]
